FAERS Safety Report 22518413 (Version 1)
Quarter: 2023Q2

REPORT INFORMATION
  Report Type: Report from Study
  Country: GB (occurrence: GB)
  Receive Date: 20230605
  Receipt Date: 20230605
  Transmission Date: 20230722
  Serious: Yes (Other)
  Sender: FDA-Public Use
  Company Number: GB-APIL-2313570US

PATIENT
  Age: 30 Year
  Sex: Female

DRUGS (1)
  1. BOTULINUM TOXIN TYPE A [Suspect]
     Active Substance: BOTULINUM TOXIN TYPE A
     Indication: Product used for unknown indication
     Dosage: UNK, SINGLE
     Route: 065

REACTIONS (8)
  - Facial paralysis [Unknown]
  - Facial discomfort [Unknown]
  - Skin wrinkling [Unknown]
  - Eye disorder [Unknown]
  - Self-consciousness [Unknown]
  - Mephisto sign [Unknown]
  - Affect lability [Unknown]
  - Therapeutic response shortened [Unknown]
